FAERS Safety Report 9301768 (Version 1)
Quarter: 2013Q2

REPORT INFORMATION
  Report Type: Spontaneous
  Country: DE (occurrence: DE)
  Receive Date: 20130521
  Receipt Date: 20130521
  Transmission Date: 20140414
  Serious: Yes (Other)
  Sender: FDA-Public Use
  Company Number: DE-JNJFOC-20130509507

PATIENT
  Sex: Male

DRUGS (2)
  1. NICORETTE KAUGUMMI 2MG FRESHFRUIT [Suspect]
     Indication: PRODUCT USED FOR UNKNOWN INDICATION
     Dosage: 2 MG GUM, 6-8 GUMS A DAY
     Route: 048
  2. NICORETTE KAUGUMMI 2MG FRESHFRUIT [Suspect]
     Indication: PRODUCT USED FOR UNKNOWN INDICATION
     Dosage: 2 MG GUM, 15 PIECES A DAY
     Route: 048

REACTIONS (2)
  - Nicotine dependence [Not Recovered/Not Resolved]
  - Intentional drug misuse [Unknown]
